FAERS Safety Report 8516668-4 (Version None)
Quarter: 2012Q2

REPORT INFORMATION
  Report Type: 
  Country: None (occurrence: None)
  Receive Date: 20120406
  Receipt Date: 20101102
  Transmission Date: 20120825
  Serious: Yes (Other)
  Sender: FDA-Public Use
  Company Number: PHHY2010US75566

PATIENT
  Sex: Male

DRUGS (2)
  1. TASIGNA [Suspect]
     Indication: CHRONIC MYELOID LEUKAEMIA
     Dosage: 300 MG, BID, ORAL
     Route: 048
     Dates: start: 20100927
  2. ORAL SUPPLEMENTS [Concomitant]

REACTIONS (3)
  - HYPOKALAEMIA [None]
  - BLOOD MAGNESIUM DECREASED [None]
  - DIARRHOEA [None]
